FAERS Safety Report 23232783 (Version 1)
Quarter: 2023Q4

REPORT INFORMATION
  Report Type: Spontaneous
  Country: AR (occurrence: AR)
  Receive Date: 20231128
  Receipt Date: 20231128
  Transmission Date: 20240110
  Serious: Yes (Other)
  Sender: FDA-Public Use
  Company Number: AR-PFIZER INC-PV202300166866

PATIENT
  Age: 52 Year
  Sex: Male

DRUGS (1)
  1. ENBREL [Suspect]
     Active Substance: ETANERCEPT
     Indication: Rheumatoid arthritis
     Dosage: 50 MG, WEEKLY
     Route: 065
     Dates: start: 20170524, end: 202309

REACTIONS (8)
  - Immunosuppression [Unknown]
  - Urinary tract infection [Recovered/Resolved]
  - Pneumonia [Unknown]
  - Type 1 diabetes mellitus [Unknown]
  - Angina pectoris [Unknown]
  - Pharyngitis [Unknown]
  - Laryngitis [Unknown]
  - Inappropriate schedule of product administration [Unknown]

NARRATIVE: CASE EVENT DATE: 20230901
